FAERS Safety Report 9288278 (Version 1)
Quarter: 2013Q2

REPORT INFORMATION
  Report Type: Spontaneous
  Country: US (occurrence: None)
  Receive Date: 20130513
  Receipt Date: 20130513
  Transmission Date: 20140414
  Serious: Yes (Other)
  Sender: FDA-Public Use
  Company Number: None

PATIENT
  Age: 51 Year
  Sex: Male
  Weight: 86.18 kg

DRUGS (1)
  1. LEVEQUIN 750 MG. 1 DAY = 10 DAYS [Suspect]
     Indication: APPENDICITIS PERFORATED
     Route: 041
     Dates: start: 20120108, end: 20120123

REACTIONS (8)
  - Achilles tendon discomfort [None]
  - Hypoaesthesia [None]
  - Arthralgia [None]
  - Burning sensation [None]
  - Tremor [None]
  - Tendon pain [None]
  - Tinnitus [None]
  - Sleep disorder [None]
